FAERS Safety Report 6696353-4 (Version None)
Quarter: 2010Q2

REPORT INFORMATION
  Report Type: 
  Country: None (occurrence: None)
  Receive Date: 20100421
  Receipt Date: 20100401
  Transmission Date: 20101027
  Serious: Yes (Other)
  Sender: FDA-Public Use
  Company Number: 230006M10AUS

PATIENT
  Age: 26 Year
  Sex: Female

DRUGS (4)
  1. REBIF [Suspect]
     Indication: RELAPSING-REMITTING MULTIPLE SCLEROSIS
     Dosage: 44, 3 IN 1 WK
     Dates: start: 20090601, end: 20100201
  2. ZOLOFT [Concomitant]
  3. PANADEINE FORTE (PANADEINE CO) [Concomitant]
  4. ENDEP (AMTRIPTYLINE HYDROCHLORIDE) [Concomitant]

REACTIONS (2)
  - DEPRESSION SUICIDAL [None]
  - DRUG INEFFECTIVE [None]
